FAERS Safety Report 15165157 (Version 4)
Quarter: 2022Q1

REPORT INFORMATION
  Report Type: Spontaneous
  Country: DE (occurrence: DE)
  Receive Date: 20180719
  Receipt Date: 20220321
  Transmission Date: 20220423
  Serious: Yes (Hospitalization)
  Sender: FDA-Public Use
  Company Number: DE-NOVPHSZ-PHHY2018DE053106

PATIENT
  Age: 78 Year
  Sex: Male

DRUGS (16)
  1. ENTACAPONE [Suspect]
     Active Substance: ENTACAPONE
     Dosage: UNK UNK, QD
     Route: 065
  2. TROSPIUM [Suspect]
     Active Substance: TROSPIUM
     Indication: Micturition disorder
     Dosage: UNK
     Route: 065
  3. PRAMIPEXOLE [Suspect]
     Active Substance: PRAMIPEXOLE
     Indication: Parkinson^s disease
     Dosage: 0.7 MG, QD
     Route: 065
  4. PRAMIPEXOLE [Suspect]
     Active Substance: PRAMIPEXOLE
     Dosage: 1.05 MILLIGRAM, QD (1.05 MG, QD)
     Route: 065
  5. ROPINIROLE [Suspect]
     Active Substance: ROPINIROLE
     Indication: Parkinson^s disease
     Dosage: 6 MILLIGRAM, QD (6 MILLIGRAM DAILY)
     Route: 065
  6. RASAGILINE MESYLATE [Suspect]
     Active Substance: RASAGILINE MESYLATE
     Indication: Product used for unknown indication
     Dosage: 1 MILLIGRAM, QD (1 MILLIGRAM DAILY)
     Route: 065
  7. LEVODOPA [Suspect]
     Active Substance: LEVODOPA
     Indication: Parkinson^s disease
     Dosage: 600 MILLIGRAM, QD (600 MG, QD)
     Route: 065
  8. AMANTADINE [Suspect]
     Active Substance: AMANTADINE
     Indication: Parkinson^s disease
     Dosage: 200 MILLIGRAM, QD (200 MG, QD)
     Route: 065
  9. CARBIDOPA\ENTACAPONE\LEVODOPA [Suspect]
     Active Substance: CARBIDOPA\ENTACAPONE\LEVODOPA
     Indication: Product used for unknown indication
     Dosage: 600 MILLIGRAM, QD (600 MILLIGRAM DAILY)
     Route: 065
  10. RASAGILINE [Concomitant]
     Active Substance: RASAGILINE
     Dosage: 1 MG, QD
     Route: 065
  11. ATORVASTATIN [Concomitant]
     Active Substance: ATORVASTATIN
     Indication: Coronary artery disease
     Dosage: 40 MILLIGRAM, QD (40 MG, QD)
  12. ATORVASTATIN [Concomitant]
     Active Substance: ATORVASTATIN
     Dosage: 40 MG, QD
     Route: 065
  13. PAROXETINE [Concomitant]
     Active Substance: PAROXETINE
     Indication: Depression
     Dosage: 20 MILLIGRAM, QD
     Route: 065
  14. PAROXETINE [Concomitant]
     Active Substance: PAROXETINE
     Indication: Fear
     Dosage: UNK
  15. PAROXETINE [Concomitant]
     Active Substance: PAROXETINE
     Indication: Anxiety
  16. ASPIRIN [Concomitant]
     Active Substance: ASPIRIN
     Indication: Coronary artery disease
     Dosage: 100 MILLIGRAM, QD (100 MILLIGRAM DAILY)
     Route: 065

REACTIONS (27)
  - Blood creatinine increased [Recovering/Resolving]
  - Urinary retention [Recovering/Resolving]
  - Mydriasis [Recovering/Resolving]
  - White blood cell count increased [Recovering/Resolving]
  - Dementia [Recovering/Resolving]
  - Hyperthermia [Recovering/Resolving]
  - Freezing phenomenon [Not Recovered/Not Resolved]
  - Hyponatraemia [Recovering/Resolving]
  - General physical health deterioration [Recovering/Resolving]
  - Disturbance in attention [Recovering/Resolving]
  - Dysphonia [Recovering/Resolving]
  - Therapeutic product effect variable [Recovering/Resolving]
  - Parkinson^s disease [Unknown]
  - Blood creatine phosphokinase increased [Recovering/Resolving]
  - Micturition disorder [Recovering/Resolving]
  - Tachycardia [Recovering/Resolving]
  - Thrombophlebitis [Recovering/Resolving]
  - Troponin increased [Recovering/Resolving]
  - Anticholinergic syndrome [Recovering/Resolving]
  - Nocturia [Recovering/Resolving]
  - Fall [Recovering/Resolving]
  - Hyperkinesia [Recovering/Resolving]
  - Confusional state [Recovering/Resolving]
  - Constipation [Recovering/Resolving]
  - Sleep disorder [Recovering/Resolving]
  - Asthenia [Recovering/Resolving]
  - Fatigue [Recovering/Resolving]
